FAERS Safety Report 24379153 (Version 6)
Quarter: 2025Q3

REPORT INFORMATION
  Report Type: Spontaneous
  Country: JP (occurrence: JP)
  Receive Date: 20240930
  Receipt Date: 20250908
  Transmission Date: 20251020
  Serious: Yes (Hospitalization, Other)
  Sender: PFIZER
  Company Number: JP-PFIZER INC-PV202400126485

PATIENT
  Age: 4 Month
  Sex: Male

DRUGS (5)
  1. SIROLIMUS [Suspect]
     Active Substance: SIROLIMUS
     Indication: Kaposiform haemangioendothelioma
     Dosage: 0.3 MG, DAILY (1.2 MG/M2)
     Route: 065
     Dates: start: 20210602, end: 20210618
  2. SIROLIMUS [Suspect]
     Active Substance: SIROLIMUS
     Dosage: 0.4 MG, DAILY
     Route: 065
     Dates: start: 20210619, end: 20210627
  3. SIROLIMUS [Suspect]
     Active Substance: SIROLIMUS
     Dosage: 0.5 MG, DAILY
     Route: 065
     Dates: start: 20210628
  4. SIROLIMUS [Suspect]
     Active Substance: SIROLIMUS
     Dosage: 0.8 MG, DAILY
     Route: 048
     Dates: start: 20240722
  5. SULFAMETHOXAZOLE\TRIMETHOPRIM [Concomitant]
     Active Substance: SULFAMETHOXAZOLE\TRIMETHOPRIM
     Route: 048
     Dates: end: 20250307

REACTIONS (8)
  - Cellulitis [Recovering/Resolving]
  - Tumour haemorrhage [Unknown]
  - Haemangioma-thrombocytopenia syndrome [Recovering/Resolving]
  - Kaposiform haemangioendothelioma [Unknown]
  - Neoplasm progression [Unknown]
  - Contusion [Recovering/Resolving]
  - Off label use [Unknown]
  - Drug effective for unapproved indication [Unknown]

NARRATIVE: CASE EVENT DATE: 20210602
